FAERS Safety Report 10806439 (Version 1)
Quarter: 2015Q1

REPORT INFORMATION
  Report Type: Report from Study
  Country: US (occurrence: US)
  Receive Date: 20150217
  Receipt Date: 20150217
  Transmission Date: 20150721
  Serious: No
  Sender: FDA-Public Use
  Company Number: US-ABBVIE-14K-163-1258222-00

PATIENT
  Age: 61 Year
  Sex: Male

DRUGS (8)
  1. HUMIRA [Suspect]
     Active Substance: ADALIMUMAB
     Indication: RHEUMATOID ARTHRITIS
     Dates: start: 20140703
  2. ACETAMINOPHEN W/HYDROCODONE [Concomitant]
     Active Substance: ACETAMINOPHEN\HYDROCODONE
     Indication: PAIN
     Dosage: 5/325 MG
     Route: 048
  3. ASPIRIN. [Concomitant]
     Active Substance: ASPIRIN
     Indication: CARDIAC DISORDER
     Route: 048
  4. METOPROLOL TARTRATE. [Concomitant]
     Active Substance: METOPROLOL TARTRATE
     Indication: HYPERTENSION
     Route: 048
  5. PREDNISONE. [Concomitant]
     Active Substance: PREDNISONE
     Indication: RHEUMATOID ARTHRITIS
     Route: 048
  6. DICLOFENAC SODIUM. [Concomitant]
     Active Substance: DICLOFENAC SODIUM
     Indication: RHEUMATOID ARTHRITIS
     Route: 048
  7. NAPROXEN. [Concomitant]
     Active Substance: NAPROXEN
     Indication: RHEUMATOID ARTHRITIS
     Route: 048
  8. LISINOPRIL HCTZ [Concomitant]
     Active Substance: HYDROCHLOROTHIAZIDE\LISINOPRIL
     Indication: HYPERTENSION
     Dosage: 20/25 MG
     Route: 048

REACTIONS (3)
  - Dyspnoea [Not Recovered/Not Resolved]
  - Musculoskeletal pain [Recovering/Resolving]
  - Hyperhidrosis [Recovering/Resolving]

NARRATIVE: CASE EVENT DATE: 20140704
